FAERS Safety Report 15862606 (Version 2)
Quarter: 2019Q1

REPORT INFORMATION
  Report Type: Spontaneous
  Country: FR (occurrence: FR)
  Receive Date: 20190124
  Receipt Date: 20190124
  Transmission Date: 20190417
  Serious: Yes (Other)
  Sender: FDA-Public Use
  Company Number: PHHY2019FR012328

PATIENT
  Age: 74 Year
  Sex: Male

DRUGS (12)
  1. BISOPROLOL FUMARATE. [Suspect]
     Active Substance: BISOPROLOL FUMARATE
     Indication: HYPERTENSION
     Dosage: UNK
     Route: 048
  2. AMIODARONE HYDROCHLORIDE. [Suspect]
     Active Substance: AMIODARONE HYDROCHLORIDE
     Indication: ARRHYTHMIA
     Dosage: UNK
     Route: 048
  3. GALVUS [Suspect]
     Active Substance: VILDAGLIPTIN
     Indication: INSULIN-REQUIRING TYPE 2 DIABETES MELLITUS
     Dosage: UNK
     Route: 048
  4. HUMALOG [Suspect]
     Active Substance: INSULIN LISPRO
     Indication: INSULIN-REQUIRING TYPE 2 DIABETES MELLITUS
     Dosage: UNK
     Route: 058
  5. FUROSEMIDE. [Suspect]
     Active Substance: FUROSEMIDE
     Indication: HYPERTENSION
     Dosage: UNK
     Route: 048
  6. VALSARTAN. [Suspect]
     Active Substance: VALSARTAN
     Indication: HYPERTENSION
     Dosage: UNK
     Route: 048
  7. ROSUVASTATIN. [Suspect]
     Active Substance: ROSUVASTATIN
     Indication: HYPERCHOLESTEROLAEMIA
     Dosage: UNK
     Route: 048
  8. LERCANIDIPINE [Suspect]
     Active Substance: LERCANIDIPINE
     Indication: HYPERTENSION
     Dosage: UNK
     Route: 048
  9. ALLOPURINOL. [Suspect]
     Active Substance: ALLOPURINOL
     Indication: HYPERURICAEMIA
     Dosage: UNK
     Route: 048
  10. ALLOPURINOL. [Suspect]
     Active Substance: ALLOPURINOL
     Indication: GOUT
  11. KARDEGIC [Suspect]
     Active Substance: ASPIRIN DL-LYSINE
     Indication: PROPHYLAXIS
     Dosage: UNK
     Route: 048
  12. CORTANCYL [Suspect]
     Active Substance: PREDNISONE
     Indication: NEPHROPATHY
     Dosage: UNK
     Route: 048

REACTIONS (1)
  - Pemphigoid [Not Recovered/Not Resolved]

NARRATIVE: CASE EVENT DATE: 2017
